FAERS Safety Report 13192775 (Version 4)
Quarter: 2018Q3

REPORT INFORMATION
  Report Type: Report from Study
  Country: KR (occurrence: KR)
  Receive Date: 20170207
  Receipt Date: 20180821
  Transmission Date: 20181010
  Serious: Yes (Hospitalization)
  Sender: FDA-Public Use
  Company Number: KR-ACTELION-A-CH2017-149107

PATIENT
  Age: 66 Year
  Sex: Male

DRUGS (18)
  1. WARFARIN [Concomitant]
     Active Substance: WARFARIN
     Indication: PRODUCT USED FOR UNKNOWN INDICATION
     Dosage: 2 MG, QD
     Route: 048
     Dates: start: 20161121, end: 20161208
  2. LASIX [Concomitant]
     Active Substance: FUROSEMIDE
     Dosage: 20 MG, QD
     Route: 048
  3. SURFOLASE [Concomitant]
     Dosage: 200 MG, QD
     Route: 048
     Dates: start: 20161230, end: 20170108
  4. CIPROBAY HC OTIC [Concomitant]
     Dosage: 5 GTT, QD
     Dates: start: 20170119, end: 20170423
  5. WARFARIN [Concomitant]
     Active Substance: WARFARIN
     Dosage: 1 MG, QD
     Route: 048
     Dates: start: 20161209
  6. CRESTOR [Concomitant]
     Active Substance: ROSUVASTATIN CALCIUM
     Dosage: 20 MG, QD
     Route: 048
  7. MOTILIDONE [Concomitant]
     Dosage: 3 DF, QD
     Route: 048
     Dates: start: 20161230, end: 20170108
  8. ALDACTONE [Concomitant]
     Active Substance: SPIRONOLACTONE
  9. DUROC [Concomitant]
     Dosage: 2 DF, QD
     Route: 048
     Dates: start: 20161201
  10. MUCOPECT [Concomitant]
     Dosage: 2 DF, QD
     Route: 048
     Dates: start: 20170224, end: 20170324
  11. MEIACT [Concomitant]
     Active Substance: CEFDITOREN PIVOXIL
     Dosage: 3 DF, QD
     Route: 048
     Dates: start: 20170101, end: 20170111
  12. FLUMARIN [Concomitant]
     Active Substance: FLOMOXEF SODIUM
     Dosage: 2000 MG, QD
     Route: 042
     Dates: start: 20161230, end: 20161231
  13. SUSPEN ER [Concomitant]
     Dosage: 3 DF, QD
     Route: 048
     Dates: start: 20161230, end: 20170108
  14. TERRAMYCIN [Concomitant]
     Active Substance: OXYTETRACYCLINE\OXYTETRACYCLINE HYDROCHLORIDE
     Dosage: UNK
     Route: 062
     Dates: start: 20161231, end: 20161231
  15. THEOLAN?B [Concomitant]
     Dosage: 2 DF, QD
     Route: 048
     Dates: start: 20170224, end: 20170324
  16. OPSUMIT [Suspect]
     Active Substance: MACITENTAN
     Indication: PULMONARY ARTERIAL HYPERTENSION
     Dosage: 10 MG, OD
     Route: 048
     Dates: start: 20161130
  17. TARIVID OTIC [Concomitant]
     Dosage: 5 GTT, UNK
     Dates: start: 201701, end: 20170118
  18. HERBEN [Concomitant]
     Active Substance: DILTIAZEM HYDROCHLORIDE
     Dosage: 180 MG, UNK
     Route: 048
     Dates: start: 20161130, end: 20161206

REACTIONS (8)
  - Cough [Recovered/Resolved]
  - Diastolic dysfunction [Recovered/Resolved]
  - Blood pressure systolic decreased [Recovered/Resolved]
  - Ear operation [Unknown]
  - Sputum discoloured [Recovered/Resolved]
  - Pulmonary embolism [Recovered/Resolved]
  - Pneumonia [Recovered/Resolved]
  - Dyspnoea [Recovered/Resolved]

NARRATIVE: CASE EVENT DATE: 20161206
